FAERS Safety Report 13501943 (Version 1)
Quarter: 2017Q2

REPORT INFORMATION
  Report Type: Report from Study
  Country: None (occurrence: US)
  Receive Date: 20170502
  Receipt Date: 20170502
  Transmission Date: 20170830
  Serious: Yes (Hospitalization, Other)
  Sender: FDA-Public Use
  Company Number: US-ABBVIE-17K-163-1904237-00

PATIENT
  Age: 56 Year
  Sex: Male

DRUGS (3)
  1. ADVIL [Concomitant]
     Active Substance: IBUPROFEN
     Indication: HEADACHE
  2. ALEVE [Concomitant]
     Active Substance: NAPROXEN SODIUM
     Indication: HEADACHE
  3. HUMIRA [Suspect]
     Active Substance: ADALIMUMAB
     Indication: PSORIASIS
     Route: 058
     Dates: end: 201702

REACTIONS (4)
  - Ameloblastoma [Recovering/Resolving]
  - Blood testosterone decreased [Not Recovered/Not Resolved]
  - Procedural pain [Recovered/Resolved]
  - Libido decreased [Not Recovered/Not Resolved]

NARRATIVE: CASE EVENT DATE: 2015
